FAERS Safety Report 9775725 (Version 1)
Quarter: 2013Q4

REPORT INFORMATION
  Report Type: Spontaneous
  Country: DE (occurrence: DE)
  Receive Date: 20131220
  Receipt Date: 20131220
  Transmission Date: 20140711
  Serious: Yes (Other)
  Sender: FDA-Public Use
  Company Number: DE-BRISTOL-MYERS SQUIBB COMPANY-19910637

PATIENT
  Age: 65 Year
  Sex: Female

DRUGS (3)
  1. BYETTA PEN DISPOSABLE [Suspect]
     Dosage: SICE 7OCT13 TWICE DAILY
     Dates: start: 20131006
  2. ATACAND [Concomitant]
  3. HYDROCHLOROTHIAZIDE [Concomitant]

REACTIONS (3)
  - Corneal disorder [Not Recovered/Not Resolved]
  - Dysgeusia [Not Recovered/Not Resolved]
  - Rash [Not Recovered/Not Resolved]
